FAERS Safety Report 17829157 (Version 1)
Quarter: 2020Q2

REPORT INFORMATION
  Report Type: Spontaneous
  Country: US (occurrence: US)
  Receive Date: 20200527
  Receipt Date: 20200527
  Transmission Date: 20200714
  Serious: Yes (Other)
  Sender: FDA-Public Use
  Company Number: None

PATIENT
  Sex: Male
  Weight: 44.55 kg

DRUGS (1)
  1. ALENDRONATE [Suspect]
     Active Substance: ALENDRONATE SODIUM
     Dates: start: 20200523, end: 20200523

REACTIONS (4)
  - Musculoskeletal chest pain [None]
  - Peripheral swelling [None]
  - Musculoskeletal pain [None]
  - Pain in extremity [None]
